FAERS Safety Report 9714734 (Version 1)
Quarter: 2013Q4

REPORT INFORMATION
  Report Type: Spontaneous
  Country: CA (occurrence: CA)
  Receive Date: 20131126
  Receipt Date: 20131126
  Transmission Date: 20140711
  Serious: Yes (Disabling, Other)
  Sender: FDA-Public Use
  Company Number: CA-B.I. PHARMACEUTICALS,INC./RIDGEFIELD-2013-BI-38723CN

PATIENT
  Age: 71 Year
  Sex: Male
  Weight: 72.12 kg

DRUGS (13)
  1. PRADAX [Suspect]
     Dosage: 300 MG
     Route: 048
  2. ALLOPURINOL [Concomitant]
  3. CRESTOR [Concomitant]
  4. EZETROL [Concomitant]
  5. HUMALOG [Concomitant]
     Dosage: INJECTION
  6. METFORMIN [Concomitant]
  7. NITROGLYCERIN [Concomitant]
     Dosage: SPRAY
  8. PAROXETINE [Concomitant]
  9. RABEPRAZOLE [Concomitant]
  10. RAMIPRIL [Concomitant]
  11. SOTALOL [Concomitant]
  12. SPIRIVA [Concomitant]
  13. SYMBICORT TURBUHALER [Concomitant]

REACTIONS (6)
  - Activated partial thromboplastin time prolonged [Unknown]
  - Choroidal detachment [Unknown]
  - Choroidal haemorrhage [Unknown]
  - Haemoglobin decreased [Unknown]
  - International normalised ratio increased [Unknown]
  - Intraocular pressure increased [Unknown]
